FAERS Safety Report 18242754 (Version 1)
Quarter: 2020Q3

REPORT INFORMATION
  Report Type: Report from Study
  Country: US (occurrence: US)
  Receive Date: 20200908
  Receipt Date: 20200908
  Transmission Date: 20201103
  Serious: No
  Sender: FDA-Public Use
  Company Number: US-CELGENEUS-USA-20200900576

PATIENT
  Age: 65 Year
  Sex: Female

DRUGS (1)
  1. FEDRATINIB [Suspect]
     Active Substance: FEDRATINIB
     Indication: MYELOFIBROSIS
     Dosage: 400 MILLIGRAM
     Route: 048

REACTIONS (1)
  - Gastric ulcer [Recovered/Resolved]
